FAERS Safety Report 4778764-7 (Version None)
Quarter: 2005Q3

REPORT INFORMATION
  Report Type: 
  Country: None (occurrence: None)
  Receive Date: 20050922
  Receipt Date: 20050906
  Transmission Date: 20060218
  Serious: Yes (Hospitalization)
  Sender: FDA-Public Use
  Company Number: 217859

PATIENT
  Age: 55 Year
  Sex: Male
  Weight: 78 kg

DRUGS (4)
  1. AVASTIN [Suspect]
     Indication: COLORECTAL CANCER METASTATIC
     Dosage: 390 MG
     Route: 042
     Dates: start: 20050728
  2. ERLOTINIB (ERLOTINIB) [Suspect]
     Indication: COLORECTAL CANCER METASTATIC
     Dosage: 100 MG, QD, ORAL
     Route: 048
     Dates: start: 20050728
  3. CAPECITABINE                             (CAPECITABINE) [Suspect]
     Indication: COLORECTAL CANCER METASTATIC
     Dosage: 5500 MG, ORAL
     Route: 048
     Dates: start: 20050728
  4. OXALIPLATIN                    (OXALIPLATIN) [Suspect]
     Indication: COLORECTAL CANCER METASTATIC
     Dosage: 190 MG, INTRAVENOUS
     Route: 042
     Dates: start: 20050728

REACTIONS (2)
  - DIARRHOEA [None]
  - HYPOVOLAEMIC SHOCK [None]
